FAERS Safety Report 23586264 (Version 1)
Quarter: 2024Q1

REPORT INFORMATION
  Report Type: Spontaneous
  Country: US (occurrence: None)
  Receive Date: 20240301
  Receipt Date: 20240301
  Transmission Date: 20240409
  Serious: Yes (Other)
  Sender: FDA-Public Use
  Company Number: None

PATIENT
  Age: 53 Year
  Sex: Male
  Weight: 103.95 kg

DRUGS (19)
  1. TRULICITY [Suspect]
     Active Substance: DULAGLUTIDE
     Indication: Type 2 diabetes mellitus
     Dosage: OTHER QUANTITY : 1 INJECTION(S);?OTHER FREQUENCY : ONCE A WEEK;?
     Route: 058
     Dates: start: 20240109, end: 20240301
  2. XANAX [Suspect]
     Active Substance: ALPRAZOLAM
  3. DEVICE [Concomitant]
     Active Substance: DEVICE
  4. MODAFINIL [Concomitant]
     Active Substance: MODAFINIL
  5. PLAQUENIL [Concomitant]
     Active Substance: HYDROXYCHLOROQUINE SULFATE
  6. ZETIA [Concomitant]
     Active Substance: EZETIMIBE
  7. LAMICTAL [Concomitant]
     Active Substance: LAMOTRIGINE
  8. BASAGLAR [Concomitant]
     Active Substance: INSULIN GLARGINE
  9. NOVOLOG [Concomitant]
     Active Substance: INSULIN ASPART
  10. JARDIANCE [Concomitant]
     Active Substance: EMPAGLIFLOZIN
  11. VOLTAREN [Concomitant]
     Active Substance: DICLOFENAC SODIUM
  12. DEVICE [Concomitant]
     Active Substance: DEVICE
  13. VALTREX [Concomitant]
     Active Substance: VALACYCLOVIR HYDROCHLORIDE
  14. LOMOTIL [Concomitant]
     Active Substance: ATROPINE SULFATE\DIPHENOXYLATE HYDROCHLORIDE
  15. PREVACID [Concomitant]
     Active Substance: LANSOPRAZOLE
  16. VITAMIN D3 [Concomitant]
     Active Substance: CHOLECALCIFEROL
  17. CALCIUM CARBONATE [Concomitant]
     Active Substance: CALCIUM CARBONATE
  18. VITAMIN C [Concomitant]
     Active Substance: ASCORBIC ACID
  19. TYLENOL [Concomitant]
     Active Substance: ACETAMINOPHEN

REACTIONS (5)
  - Frustration tolerance decreased [None]
  - Anger [None]
  - Disturbance in attention [None]
  - Muscle twitching [None]
  - Feeling abnormal [None]

NARRATIVE: CASE EVENT DATE: 20240301
